FAERS Safety Report 20165739 (Version 4)
Quarter: 2022Q1

REPORT INFORMATION
  Report Type: Spontaneous
  Country: US (occurrence: US)
  Receive Date: 20211209
  Receipt Date: 20220107
  Transmission Date: 20220423
  Serious: No
  Sender: FDA-Public Use
  Company Number: US-BEH-2021139236

PATIENT
  Age: 52 Year
  Sex: Female

DRUGS (5)
  1. HIZENTRA [Suspect]
     Active Substance: HUMAN IMMUNOGLOBULIN G
     Indication: Immunodeficiency common variable
     Dosage: UNK
     Route: 065
     Dates: start: 20211207
  2. HIZENTRA [Suspect]
     Active Substance: HUMAN IMMUNOGLOBULIN G
     Dosage: 15 GRAM, QW
     Route: 058
     Dates: start: 20210827
  3. HIZENTRA [Suspect]
     Active Substance: HUMAN IMMUNOGLOBULIN G
     Dosage: UNK
     Route: 065
  4. HIZENTRA [Suspect]
     Active Substance: HUMAN IMMUNOGLOBULIN G
     Dosage: 15 GRAM, QW
     Route: 058
  5. HIZENTRA [Suspect]
     Active Substance: HUMAN IMMUNOGLOBULIN G
     Dosage: 15 GRAM, QW
     Route: 058

REACTIONS (26)
  - Infusion site pruritus [Recovered/Resolved]
  - Recalled product administered [Unknown]
  - Infusion site erythema [Unknown]
  - Recalled product administered [Recovered/Resolved]
  - Injection site pain [Unknown]
  - Recalled product administered [Unknown]
  - Infusion site pruritus [Recovered/Resolved]
  - Recalled product administered [Recovered/Resolved]
  - Skin irritation [Unknown]
  - Recalled product administered [Not Recovered/Not Resolved]
  - Infusion site swelling [Recovered/Resolved]
  - Recalled product administered [Not Recovered/Not Resolved]
  - Malaise [Not Recovered/Not Resolved]
  - Recalled product administered [Not Recovered/Not Resolved]
  - Asthenia [Not Recovered/Not Resolved]
  - Recalled product administered [Recovered/Resolved]
  - Feeling abnormal [Not Recovered/Not Resolved]
  - Recalled product administered [Unknown]
  - Fatigue [Not Recovered/Not Resolved]
  - Recalled product administered [Unknown]
  - Lethargy [Unknown]
  - Recalled product administered [Unknown]
  - Hypersensitivity [Unknown]
  - Recalled product administered [Not Recovered/Not Resolved]
  - Infusion site reaction [Not Recovered/Not Resolved]
  - Recalled product administered [Not Recovered/Not Resolved]

NARRATIVE: CASE EVENT DATE: 20211207
